FAERS Safety Report 17495439 (Version 1)
Quarter: 2020Q1

REPORT INFORMATION
  Report Type: Spontaneous
  Country: BF (occurrence: BF)
  Receive Date: 20200304
  Receipt Date: 20200304
  Transmission Date: 20200409
  Serious: Yes (Death, Other)
  Sender: FDA-Public Use
  Company Number: NVSC2020BF060721

PATIENT
  Age: 60 Year
  Sex: Female

DRUGS (1)
  1. GLIVEC [Suspect]
     Active Substance: IMATINIB MESYLATE
     Indication: CHRONIC MYELOID LEUKAEMIA
     Dosage: 400 MG
     Route: 065
     Dates: start: 201806

REACTIONS (5)
  - Pancytopenia [Unknown]
  - Bone marrow failure [Unknown]
  - Cardio-respiratory arrest [Fatal]
  - Splenomegaly [Unknown]
  - Cytopenia [Unknown]

NARRATIVE: CASE EVENT DATE: 201903
